FAERS Safety Report 4849755-2 (Version None)
Quarter: 2005Q4

REPORT INFORMATION
  Report Type: 
  Country: None (occurrence: None)
  Receive Date: 20051115
  Receipt Date: 20050912
  Transmission Date: 20060501
  Serious: No
  Sender: FDA-Public Use
  Company Number: S05-USA-04385-01

PATIENT
  Age: 32 Year
  Sex: Female

DRUGS (3)
  1. NAMENDA [Suspect]
     Indication: AMNESIA
     Dosage: 5 MG QD PO
     Route: 048
     Dates: start: 20050908
  2. RISPERDAL [Concomitant]
  3. ZONEGRAN [Concomitant]

REACTIONS (2)
  - APHASIA [None]
  - DEPRESSION [None]
